FAERS Safety Report 9514675 (Version 1)
Quarter: 2013Q1

REPORT INFORMATION
  Report Type: Spontaneous
  Country: US (occurrence: None)
  Receive Date: 20130305
  Receipt Date: 20130305
  Transmission Date: 20140127
  Serious: Yes (Other)
  Sender: FDA-Public Use
  Company Number: 163-21880-12112408

PATIENT
  Age: 48 Year
  Sex: Female

DRUGS (7)
  1. REVLIMID [Suspect]
     Indication: PLASMA CELL MYELOMA
     Dosage: 25 MG,  1 IN 1 D,   PO
     Route: 048
     Dates: start: 201012, end: 201211
  2. ALPRAZOLAM (ALPRAZOLAM) [Concomitant]
  3. MORPHINE [Concomitant]
  4. GABAPENTIN (GABAPENTIN) [Concomitant]
  5. BABY ASPIRIN (ACETYLSALICYLIC ACID) [Concomitant]
  6. LEXAPRO (ESCITALOPRAM OXALATE) [Concomitant]
  7. CALCIUM (CALCIUM) [Concomitant]

REACTIONS (1)
  - Neutropenia [None]
